FAERS Safety Report 7692366-4 (Version None)
Quarter: 2011Q3

REPORT INFORMATION
  Report Type: 
  Country: None (occurrence: None)
  Receive Date: 20110818
  Receipt Date: 20110803
  Transmission Date: 20111222
  Serious: Yes (Other)
  Sender: FDA-Public Use
  Company Number: US-BAYER-2011-019055

PATIENT
  Age: 62 Year
  Sex: Female

DRUGS (4)
  1. ALEVE (CAPLET) [Suspect]
     Indication: ANALGESIC THERAPY
     Dosage: 440 MG, ONCE
     Route: 048
     Dates: start: 20110201
  2. GLUCOVANCE [Concomitant]
  3. HYZAAR [Concomitant]
     Dosage: UNK
  4. SYNTHROID [Concomitant]
     Dosage: 125 ?G, UNK

REACTIONS (4)
  - ASTHMA [None]
  - WHEEZING [None]
  - BLOOD PRESSURE INCREASED [None]
  - SUFFOCATION FEELING [None]
